FAERS Safety Report 20029979 (Version 1)
Quarter: 2021Q4

REPORT INFORMATION
  Report Type: Spontaneous
  Country: US (occurrence: US)
  Receive Date: 20211103
  Receipt Date: 20211103
  Transmission Date: 20220303
  Serious: No
  Sender: FDA-Public Use
  Company Number: US-PFIZER INC-2021459040

PATIENT
  Age: 48 Year
  Sex: Male
  Weight: 77.098 kg

DRUGS (1)
  1. SUTENT [Suspect]
     Active Substance: SUNITINIB MALATE
     Indication: Gastrointestinal stromal tumour
     Dosage: 37.5 MG, DAILY
     Dates: start: 20210216

REACTIONS (8)
  - Pain in extremity [Unknown]
  - Blister [Unknown]
  - Hypoaesthesia [Unknown]
  - Sunburn [Unknown]
  - Dry skin [Unknown]
  - Skin haemorrhage [Unknown]
  - Dysgeusia [Unknown]
  - Fatigue [Unknown]
